FAERS Safety Report 16614140 (Version 1)
Quarter: 2019Q3

REPORT INFORMATION
  Report Type: Spontaneous
  Country: TR (occurrence: TR)
  Receive Date: 20190723
  Receipt Date: 20190723
  Transmission Date: 20191004
  Serious: Yes (Hospitalization)
  Sender: FDA-Public Use
  Company Number: TR-TEVA-2019-TR-1081453

PATIENT
  Sex: Female

DRUGS (1)
  1. TAMOXIFEN [Suspect]
     Active Substance: TAMOXIFEN
     Indication: INVASIVE LOBULAR BREAST CARCINOMA
     Dosage: 20 MILLIGRAM DAILY;
     Route: 048

REACTIONS (1)
  - Retinal vein occlusion [Recovering/Resolving]
